FAERS Safety Report 4369714-6 (Version None)
Quarter: 2004Q2

REPORT INFORMATION
  Report Type: 
  Country: None (occurrence: None)
  Receive Date: 20040528
  Receipt Date: 20040521
  Transmission Date: 20050107
  Serious: Yes (Life-Threatening, Hospitalization)
  Sender: FDA-Public Use
  Company Number: HQWYE082224MAY04

PATIENT
  Age: 45 Year
  Sex: Female
  Weight: 79.3 kg

DRUGS (2)
  1. MYLOTARG [Suspect]
     Indication: ACUTE MYELOID LEUKAEMIA
     Dosage: 15 MG 1X PER 1 DAY,
     Route: 042
     Dates: start: 20040424, end: 20040424
  2. CYTARABINE [Concomitant]

REACTIONS (13)
  - ASCITES [None]
  - ASPARTATE AMINOTRANSFERASE INCREASED [None]
  - BLOOD BILIRUBIN INCREASED [None]
  - CRYPTOGENIC ORGANIZING PNEUMONIA [None]
  - FEBRILE NEUTROPENIA [None]
  - LIVER FUNCTION TEST ABNORMAL [None]
  - POST PROCEDURAL COMPLICATION [None]
  - PULMONARY ALVEOLAR HAEMORRHAGE [None]
  - RESPIRATORY DISTRESS [None]
  - SINUSITIS [None]
  - THROMBOCYTOPENIA [None]
  - VENOUS STASIS [None]
  - WEIGHT INCREASED [None]
